FAERS Safety Report 8683112 (Version 2)
Quarter: 2013Q4

REPORT INFORMATION
  Report Type: Spontaneous
  Country: US (occurrence: US)
  Receive Date: 20120725
  Receipt Date: 20131031
  Transmission Date: 20140711
  Serious: Yes (Hospitalization, Other)
  Sender: FDA-Public Use
  Company Number: US-009507513-1207USA007607

PATIENT
  Sex: Male

DRUGS (10)
  1. SINEMET [Suspect]
     Indication: PARKINSON^S DISEASE
     Dosage: 3 DF, TID
     Route: 048
     Dates: start: 199907
  2. MORPHINE [Suspect]
  3. LEXAPRO [Concomitant]
     Indication: BLOOD CHOLESTEROL
  4. WELLBUTRIN [Concomitant]
     Indication: DEPRESSION
  5. NEXIUM [Concomitant]
     Indication: GASTROOESOPHAGEAL REFLUX DISEASE
  6. ZOLOFT [Concomitant]
  7. LOPID [Concomitant]
  8. REQUIP [Concomitant]
  9. STALEVO [Concomitant]
  10. COMTAN [Concomitant]

REACTIONS (9)
  - Deep brain stimulation [Unknown]
  - Deep brain stimulation [Unknown]
  - Shoulder arthroplasty [Unknown]
  - Hallucination [Not Recovered/Not Resolved]
  - Local swelling [Recovered/Resolved with Sequelae]
  - Fall [Recovered/Resolved with Sequelae]
  - Abnormal dreams [Unknown]
  - Dyskinesia [Recovered/Resolved]
  - Drug dose omission [Unknown]
